FAERS Safety Report 6015676-5 (Version None)
Quarter: 2008Q4

REPORT INFORMATION
  Report Type: 
  Country: None (occurrence: None)
  Receive Date: 20081219
  Receipt Date: 20081219
  Transmission Date: 20090506
  Serious: Yes (Other)
  Sender: FDA-Public Use
  Company Number: None

PATIENT
  Age: 33 Year
  Sex: Male
  Weight: 87.0906 kg

DRUGS (2)
  1. SPECTRAVITE ADVANCED FORMULA 1 TABLET CVS PHARMACY [Suspect]
     Indication: ROUTINE HEALTH MAINTENANCE
     Dosage: 1 TABLET DAILY PO
     Route: 048
     Dates: start: 20081216, end: 20081217
  2. COMPLETE MULTIVITAMIN 1 TABLET EQUATE [Suspect]
     Indication: ROUTINE HEALTH MAINTENANCE
     Dosage: 1 TABLET DAILY PO
     Route: 048

REACTIONS (3)
  - ABDOMINAL PAIN UPPER [None]
  - PRODUCT QUALITY ISSUE [None]
  - VOMITING [None]
